FAERS Safety Report 9525697 (Version 1)
Quarter: 2013Q1

REPORT INFORMATION
  Report Type: Spontaneous
  Country: US (occurrence: None)
  Receive Date: 20130314
  Receipt Date: 20130314
  Transmission Date: 20140127
  Serious: Yes (Other)
  Sender: FDA-Public Use
  Company Number: 1210USA001025

PATIENT
  Age: 60 Year
  Sex: Male

DRUGS (3)
  1. RIBAVIRIN [Suspect]
     Indication: HEPATITIS C
     Dates: start: 20120915, end: 20121212
  2. VICTRELIS [Suspect]
     Indication: HEPATITIS C
     Dates: start: 20121014, end: 20121212
  3. PEGASYS [Suspect]
     Indication: HEPATITIS C
     Dates: start: 20120915, end: 20121212

REACTIONS (3)
  - Rash [None]
  - Fatigue [None]
  - Drug ineffective [None]
